FAERS Safety Report 18926842 (Version 3)
Quarter: 2021Q3

REPORT INFORMATION
  Report Type: Spontaneous
  Country: FR (occurrence: FR)
  Receive Date: 20210223
  Receipt Date: 20210831
  Transmission Date: 20211014
  Serious: Yes (Death, Life-Threatening, Hospitalization, Other)
  Sender: FDA-Public Use
  Company Number: FR-DRREDDYS-GER/FRA/21/0132089

PATIENT
  Age: 69 Year
  Sex: Female

DRUGS (15)
  1. PALBOCICLIB [Suspect]
     Active Substance: PALBOCICLIB
     Indication: BREAST CANCER
     Dosage: UNK
     Route: 065
  2. EXEMESTANE. [Concomitant]
     Active Substance: EXEMESTANE
     Indication: HORMONE THERAPY
     Dosage: UNK
     Dates: start: 201607, end: 201708
  3. EXEMESTANE. [Concomitant]
     Active Substance: EXEMESTANE
     Indication: METASTASES TO PLEURA
  4. EXEMESTANE. [Concomitant]
     Active Substance: EXEMESTANE
     Indication: BREAST CANCER STAGE III
     Dosage: UNK
     Dates: start: 201607, end: 2018
  5. FULVESTRANT. [Suspect]
     Active Substance: FULVESTRANT
     Indication: BREAST CANCER
  6. FULVESTRANT. [Suspect]
     Active Substance: FULVESTRANT
     Indication: BREAST CANCER
     Dosage: UNK
  7. EVEROLIMUS. [Suspect]
     Active Substance: EVEROLIMUS
     Indication: BREAST CANCER STAGE III
     Dates: start: 201802, end: 2018
  8. EVEROLIMUS. [Suspect]
     Active Substance: EVEROLIMUS
     Indication: BREAST CANCER
  9. FULVESTRANT. [Suspect]
     Active Substance: FULVESTRANT
     Indication: BREAST CANCER METASTATIC
  10. EVEROLIMUS. [Suspect]
     Active Substance: EVEROLIMUS
     Indication: BREAST CANCER
     Dates: start: 201708, end: 201802
  11. EVEROLIMUS. [Suspect]
     Active Substance: EVEROLIMUS
     Indication: METASTASES TO PLEURA
  12. PALBOCICLIB [Suspect]
     Active Substance: PALBOCICLIB
     Indication: BREAST CANCER METASTATIC
     Dosage: UNK
     Route: 065
  13. PALBOCICLIB [Suspect]
     Active Substance: PALBOCICLIB
     Indication: METASTASES TO PLEURA
     Dosage: UNK
     Route: 065
  14. FULVESTRANT. [Suspect]
     Active Substance: FULVESTRANT
     Indication: METASTASES TO PLEURA
  15. EVEROLIMUS. [Suspect]
     Active Substance: EVEROLIMUS
     Indication: BREAST CANCER METASTATIC

REACTIONS (4)
  - Anaemia [Recovered/Resolved]
  - Drug level below therapeutic [Unknown]
  - Drug ineffective [Fatal]
  - Disease progression [Fatal]

NARRATIVE: CASE EVENT DATE: 201802
